FAERS Safety Report 10421136 (Version 1)
Quarter: 2014Q3

REPORT INFORMATION
  Report Type: Spontaneous
  Country: BR (occurrence: BR)
  Receive Date: 20140830
  Receipt Date: 20140830
  Transmission Date: 20150326
  Serious: Yes (Other)
  Sender: FDA-Public Use
  Company Number: BR-ABBVIE-14K-020-1275481-00

PATIENT
  Age: 48 Year
  Sex: Male
  Weight: 76 kg

DRUGS (5)
  1. HUMIRA [Suspect]
     Active Substance: ADALIMUMAB
     Indication: ANKYLOSING SPONDYLITIS
     Route: 058
  2. HEPATITIS VACCINES [Suspect]
     Active Substance: UNSPECIFIED INGREDIENT
     Indication: PRODUCT USED FOR UNKNOWN INDICATION
  3. METFORMIN [Concomitant]
     Active Substance: METFORMIN HYDROCHLORIDE
     Indication: DIABETES MELLITUS
     Dosage: AFTER MEALS
     Route: 048
     Dates: start: 2010
  4. GLIBENCLAMIDE [Concomitant]
     Active Substance: GLYBURIDE
     Indication: DIABETES MELLITUS
     Dosage: IN FASTING
     Route: 048
     Dates: start: 2012
  5. ENALAPRIL [Concomitant]
     Active Substance: ENALAPRIL
     Indication: HYPERTENSION
     Dosage: IN THE MORNING
     Route: 048
     Dates: start: 2010

REACTIONS (6)
  - Influenza [Recovering/Resolving]
  - Pain [Recovered/Resolved]
  - Delusion [Recovered/Resolved]
  - Pneumonia [Recovering/Resolving]
  - Tremor [Recovered/Resolved]
  - Headache [Recovered/Resolved]

NARRATIVE: CASE EVENT DATE: 20140817
